FAERS Safety Report 5719252-0 (Version None)
Quarter: 2008Q2

REPORT INFORMATION
  Report Type: 
  Country: None (occurrence: None)
  Receive Date: 20080428
  Receipt Date: 20080428
  Transmission Date: 20081010
  Serious: Yes (Death, Other)
  Sender: FDA-Public Use
  Company Number: None

PATIENT
  Age: 5 Month
  Sex: Male
  Weight: 4.536 kg

DRUGS (1)
  1. HEPARIN [Suspect]
     Dosage: SUBCUTANEOUSLY
     Route: 058

REACTIONS (4)
  - ANURIA [None]
  - CARDIAC FAILURE CONGESTIVE [None]
  - MITRAL VALVE INCOMPETENCE [None]
  - PYREXIA [None]
